FAERS Safety Report 12522900 (Version 1)
Quarter: 2016Q3

REPORT INFORMATION
  Report Type: Report from Study
  Country: US (occurrence: US)
  Receive Date: 20160701
  Receipt Date: 20160701
  Transmission Date: 20161109
  Serious: Yes (Hospitalization, Other)
  Sender: FDA-Public Use
  Company Number: US-ABBVIE-16K-163-1661487-00

PATIENT
  Sex: Female

DRUGS (3)
  1. LUPANETA PACK [Concomitant]
     Active Substance: ISOPROPYL ALCOHOL\LEUPROLIDE ACETATE\NORETHINDRONE ACETATE
     Indication: ABDOMINAL PAIN
     Dates: start: 2016
  2. LYRICA [Concomitant]
     Active Substance: PREGABALIN
     Indication: ABDOMINAL PAIN
     Dates: start: 201606
  3. HUMIRA [Suspect]
     Active Substance: ADALIMUMAB
     Indication: CROHN^S DISEASE
     Route: 058
     Dates: start: 2008

REACTIONS (8)
  - Gastrointestinal stoma complication [Recovered/Resolved]
  - Vomiting [Recovered/Resolved]
  - Colostomy [Unknown]
  - Intestinal fibrosis [Recovered/Resolved]
  - Abdominal distension [Recovered/Resolved]
  - Abdominal pain [Not Recovered/Not Resolved]
  - Intestinal stenosis [Recovered/Resolved]
  - Intestinal resection [Unknown]

NARRATIVE: CASE EVENT DATE: 2009
